FAERS Safety Report 14833424 (Version 1)
Quarter: 2018Q2

REPORT INFORMATION
  Report Type: Spontaneous
  Country: US (occurrence: US)
  Receive Date: 20180501
  Receipt Date: 20180501
  Transmission Date: 20180711
  Serious: No
  Sender: FDA-Public Use
  Company Number: US-PERRIGO-17US024748

PATIENT
  Age: 84 Year
  Sex: Male
  Weight: 58.96 kg

DRUGS (1)
  1. MOMETASONE FUROATE. [Suspect]
     Active Substance: MOMETASONE FUROATE
     Indication: SKIN CANCER
     Dosage: SMALL AMOUNT, SINGLE
     Route: 061
     Dates: start: 20170625, end: 20170625

REACTIONS (2)
  - Off label use [Recovered/Resolved]
  - Application site pain [Recovered/Resolved]

NARRATIVE: CASE EVENT DATE: 20170625
